FAERS Safety Report 5359168-5 (Version None)
Quarter: 2007Q2

REPORT INFORMATION
  Report Type: 
  Country: None (occurrence: None)
  Receive Date: 20070530
  Receipt Date: 20070410
  Transmission Date: 20071010
  Serious: No
  Sender: FDA-Public Use
  Company Number: 2007PV029682

PATIENT
  Age: 74 Year
  Sex: Male
  Weight: 139.2543 kg

DRUGS (7)
  1. BYETTA [Suspect]
     Indication: DIABETES MELLITUS NON-INSULIN-DEPENDENT
     Dosage: SEE IMAGE
     Route: 058
     Dates: start: 20070125, end: 20070201
  2. BYETTA [Suspect]
     Indication: DIABETES MELLITUS NON-INSULIN-DEPENDENT
     Dosage: SEE IMAGE
     Route: 058
     Dates: start: 20070220
  3. BYETTA [Suspect]
  4. METFORMIN HCL [Concomitant]
  5. GLUCOTROL [Concomitant]
  6. AVANDIA [Concomitant]
  7. GLIMEPIRIDE [Concomitant]

REACTIONS (13)
  - BACK PAIN [None]
  - BLOOD GLUCOSE DECREASED [None]
  - CHANGE OF BOWEL HABIT [None]
  - CONSTIPATION [None]
  - DECREASED APPETITE [None]
  - DIARRHOEA [None]
  - DISORIENTATION [None]
  - DIZZINESS [None]
  - FAECES HARD [None]
  - FLATULENCE [None]
  - STOMACH DISCOMFORT [None]
  - VISUAL DISTURBANCE [None]
  - WEIGHT DECREASED [None]
